FAERS Safety Report 8155524-0 (Version None)
Quarter: 2012Q1

REPORT INFORMATION
  Report Type: 
  Country: None (occurrence: None)
  Receive Date: 20120222
  Receipt Date: 20120214
  Transmission Date: 20120608
  Serious: Yes (Hospitalization)
  Sender: FDA-Public Use
  Company Number: US-BAYER-201010677NA

PATIENT
  Age: 28 Year
  Sex: Female
  Weight: 97.052 kg

DRUGS (12)
  1. SOMA [Concomitant]
  2. PROPOXYPHENE NAPSYLATE W/ ACETAMINOPHEN [Concomitant]
  3. ASPIRIN [Concomitant]
  4. TRAMADOL HCL [Concomitant]
  5. DIAZEPAM [Concomitant]
  6. YAZ [Suspect]
     Indication: ACNE
     Dosage: 1 DF (DAILY DOSE), QD, ORAL
     Route: 048
     Dates: start: 20070901, end: 20071201
  7. VALIUM [Concomitant]
  8. ACCUTANE [Concomitant]
  9. YAZ [Suspect]
     Indication: MENORRHAGIA
  10. ACETAMINOPHEN [Concomitant]
  11. IBUPROFEN [Concomitant]
  12. DARVOCET [Concomitant]

REACTIONS (2)
  - DEEP VEIN THROMBOSIS [None]
  - PULMONARY EMBOLISM [None]
